FAERS Safety Report 12205439 (Version 1)
Quarter: 2016Q1

REPORT INFORMATION
  Report Type: Spontaneous
  Country: US (occurrence: US)
  Receive Date: 20160323
  Receipt Date: 20160323
  Transmission Date: 20160526
  Serious: No
  Sender: FDA-Public Use
  Company Number: US-EISAI MEDICAL RESEARCH-EC-2016-015224

PATIENT
  Age: 54 Year
  Sex: Female
  Weight: 55.8 kg

DRUGS (1)
  1. BELVIQ [Suspect]
     Active Substance: LORCASERIN HYDROCHLORIDE
     Indication: WEIGHT DECREASED
     Route: 048
     Dates: start: 20160312

REACTIONS (6)
  - Heart rate increased [Recovered/Resolved]
  - Headache [Recovered/Resolved]
  - Chills [Not Recovered/Not Resolved]
  - Dizziness [Recovering/Resolving]
  - Breast swelling [Recovered/Resolved]
  - Feeling abnormal [Recovering/Resolving]

NARRATIVE: CASE EVENT DATE: 201603
